FAERS Safety Report 11029820 (Version 1)
Quarter: 2015Q2

REPORT INFORMATION
  Report Type: Spontaneous
  Country: US (occurrence: US)
  Receive Date: 20150415
  Receipt Date: 20150415
  Transmission Date: 20150821
  Serious: Yes (Death, Hospitalization)
  Sender: FDA-Public Use
  Company Number: US-ASTRAZENECA-2015SE34135

PATIENT
  Age: 68 Year
  Sex: Male

DRUGS (7)
  1. BRILINTA [Suspect]
     Active Substance: TICAGRELOR
     Indication: CARDIOGENIC SHOCK
     Dosage: LOADING DOSE
     Route: 048
     Dates: start: 2015
  2. BRILINTA [Suspect]
     Active Substance: TICAGRELOR
     Indication: ACUTE CORONARY SYNDROME
     Dosage: MAINTAINANCE DOSE
     Route: 048
     Dates: end: 2015
  3. BRILINTA [Suspect]
     Active Substance: TICAGRELOR
     Indication: ACUTE CORONARY SYNDROME
     Dosage: LOADING DOSE
     Route: 048
     Dates: start: 2015
  4. BRILINTA [Suspect]
     Active Substance: TICAGRELOR
     Indication: CARDIOGENIC SHOCK
     Dosage: MAINTAINANCE DOSE
     Route: 048
     Dates: end: 2015
  5. BRILINTA [Suspect]
     Active Substance: TICAGRELOR
     Indication: MYOCARDIAL INFARCTION
     Dosage: LOADING DOSE
     Route: 048
     Dates: start: 2015
  6. BRILINTA [Suspect]
     Active Substance: TICAGRELOR
     Indication: MYOCARDIAL INFARCTION
     Dosage: MAINTAINANCE DOSE
     Route: 048
     Dates: end: 2015
  7. ASPIRIN. [Concomitant]
     Active Substance: ASPIRIN

REACTIONS (1)
  - Pulmonary haemorrhage [Fatal]
